FAERS Safety Report 8811511 (Version 2)
Quarter: 2012Q4

REPORT INFORMATION
  Report Type: 
  Country: GR (occurrence: GR)
  Receive Date: 20120927
  Receipt Date: 20121010
  Transmission Date: 20130627
  Serious: Yes (Other)
  Sender: FDA-Public Use
  Company Number: GR-ELI_LILLY_AND_COMPANY-GR201209004247

PATIENT
  Age: 61 Year
  Sex: Female
  Weight: 75 kg

DRUGS (3)
  1. CYMBALTA [Suspect]
     Indication: DEPRESSION
     Dosage: 60 mg, qd
     Route: 048
     Dates: start: 20120910, end: 20120913
  2. RIVOTRIL [Concomitant]
     Indication: DEPRESSION
     Dosage: UNK
     Route: 048
  3. EUTHYROX [Concomitant]
     Indication: HYPERTHYROIDISM
     Dosage: UNK
     Route: 048

REACTIONS (4)
  - Chest discomfort [Recovered/Resolved]
  - Hypersensitivity [Recovered/Resolved]
  - Tremor [Recovered/Resolved]
  - Polyuria [Recovered/Resolved]
